FAERS Safety Report 24194123 (Version 3)
Quarter: 2024Q3

REPORT INFORMATION
  Report Type: Spontaneous
  Country: US (occurrence: US)
  Receive Date: 20240809
  Receipt Date: 20240913
  Transmission Date: 20241017
  Serious: No
  Sender: SANOFI AVENTIS
  Company Number: US-SANOFI-02164727

PATIENT
  Age: 57 Year
  Sex: Female

DRUGS (2)
  1. LANTUS SOLOSTAR [Suspect]
     Active Substance: INSULIN GLARGINE
     Indication: Diabetes mellitus
     Dosage: 100 U, QD
     Dates: start: 2018, end: 202408
  2. LANTUS SOLOSTAR [Suspect]
     Active Substance: INSULIN GLARGINE
     Dosage: 40 IU AM AND 60 IU PM, BID

REACTIONS (9)
  - Asthma [Unknown]
  - Dyspnoea [Unknown]
  - Platelet count decreased [Unknown]
  - Peripheral swelling [Unknown]
  - Malaise [Unknown]
  - Headache [Unknown]
  - Eosinophil count decreased [Unknown]
  - Glycosylated haemoglobin increased [Unknown]
  - Inappropriate schedule of product administration [Unknown]

NARRATIVE: CASE EVENT DATE: 20240101
